FAERS Safety Report 5888294-7 (Version None)
Quarter: 2008Q3

REPORT INFORMATION
  Report Type: 
  Country: None (occurrence: None)
  Receive Date: 20080918
  Receipt Date: 20051116
  Transmission Date: 20090109
  Serious: Yes (Disabling)
  Sender: FDA-Public Use
  Company Number: IT-ROCHE-570945

PATIENT
  Sex: Female
  Weight: 59 kg

DRUGS (2)
  1. PEGASYS [Suspect]
     Dosage: DOSE: 180. STRENGTH: 180.
     Route: 065
     Dates: start: 20051023, end: 20051028
  2. REBETOL [Suspect]
     Dosage: DOSE: 800.
     Route: 065
     Dates: start: 20051023, end: 20051028

REACTIONS (2)
  - ANXIETY [None]
  - SYNCOPE [None]
